FAERS Safety Report 5042338-3 (Version None)
Quarter: 2006Q3

REPORT INFORMATION
  Report Type: 
  Country: None (occurrence: None)
  Receive Date: 20060705
  Receipt Date: 20060626
  Transmission Date: 20061208
  Serious: Yes (Other)
  Sender: FDA-Public Use
  Company Number: PHBS2006NL09619

PATIENT
  Sex: Male

DRUGS (4)
  1. TEGRETOL [Suspect]
  2. KEPPRA [Concomitant]
  3. ASASATIN RETARD [Concomitant]
  4. LIPITOR [Concomitant]
     Route: 065

REACTIONS (8)
  - BLISTER [None]
  - NASAL MUCOSAL DISORDER [None]
  - PAIN OF SKIN [None]
  - PRURITUS [None]
  - SKIN DISCOLOURATION [None]
  - SKIN EXFOLIATION [None]
  - SKIN REACTION [None]
  - WEIGHT DECREASED [None]
